FAERS Safety Report 7829233-9 (Version None)
Quarter: 2011Q4

REPORT INFORMATION
  Report Type: 
  Country: None (occurrence: None)
  Receive Date: 20111020
  Receipt Date: 20111011
  Transmission Date: 20120403
  Serious: Yes (Other)
  Sender: FDA-Public Use
  Company Number: US-ASTRAZENECA-2011SE61010

PATIENT
  Sex: Female

DRUGS (11)
  1. CRESTOR [Suspect]
     Indication: BLOOD TRIGLYCERIDES
     Route: 048
     Dates: start: 20090601, end: 20110901
  2. ESTRACE [Concomitant]
  3. BYSTOLIC [Concomitant]
  4. PAXIL [Concomitant]
  5. FLOVENT [Concomitant]
  6. NAPROSYN [Concomitant]
  7. SYNTHROID [Concomitant]
  8. MULTI-VITAMIN [Concomitant]
  9. XOPENEX [Concomitant]
  10. LOVAZA [Concomitant]
  11. CALCIUM CARBONATE [Concomitant]

REACTIONS (5)
  - THERAPEUTIC RESPONSE UNEXPECTED [None]
  - MUCOUS STOOLS [None]
  - PAIN [None]
  - HAEMATOCHEZIA [None]
  - DRUG DOSE OMISSION [None]
